FAERS Safety Report 15288525 (Version 1)
Quarter: 2018Q3

REPORT INFORMATION
  Report Type: Spontaneous
  Country: US (occurrence: US)
  Receive Date: 20180802
  Receipt Date: 20180802
  Transmission Date: 20181010
  Serious: Yes (Life-Threatening)
  Sender: FDA-Public Use
  Company Number: None

PATIENT
  Age: 63 Year
  Sex: Male
  Weight: 81.6 kg

DRUGS (1)
  1. BEVACIZUMAB. [Suspect]
     Active Substance: BEVACIZUMAB
     Indication: GLIOBLASTOMA
     Dosage: ?          OTHER FREQUENCY:PER CHEMO CYCLE;?
     Route: 041
     Dates: start: 20170412, end: 20180221

REACTIONS (2)
  - Myocardial infarction [None]
  - Myocardial ischaemia [None]

NARRATIVE: CASE EVENT DATE: 20180314
